FAERS Safety Report 15860014 (Version 6)
Quarter: 2021Q4

REPORT INFORMATION
  Report Type: Spontaneous
  Country: DK (occurrence: DK)
  Receive Date: 20190123
  Receipt Date: 20211021
  Transmission Date: 20220303
  Serious: Yes (Hospitalization, Other)
  Sender: FDA-Public Use
  Company Number: DK-SAMSUNG BIOEPIS-SB-2018-08890

PATIENT
  Age: 32 Year
  Sex: Female
  Weight: 52 kg

DRUGS (30)
  1. ADALIMUMAB [Suspect]
     Active Substance: ADALIMUMAB
     Indication: Crohn^s disease
     Dosage: UNKNOWN DOSE
     Route: 065
  2. OCTREOTIDE [Suspect]
     Active Substance: OCTREOTIDE
     Indication: Bile acid malabsorption
     Dosage: UNK
  3. OCTREOTIDE [Suspect]
     Active Substance: OCTREOTIDE
     Indication: Diarrhoea
  4. SPIRONOLACTONE [Suspect]
     Active Substance: SPIRONOLACTONE
     Indication: Diarrhoea
     Dosage: UNK
  5. ESCITALOPRAM [Suspect]
     Active Substance: ESCITALOPRAM OXALATE
     Indication: Depression
     Dosage: 40 MILLIGRAM, QD
  6. PANTOPRAZOLE [Suspect]
     Active Substance: PANTOPRAZOLE
     Indication: Diarrhoea
     Dosage: UNK
  7. PANTOPRAZOLE [Suspect]
     Active Substance: PANTOPRAZOLE
     Indication: Bile acid malabsorption
  8. VEDOLIZUMAB [Suspect]
     Active Substance: VEDOLIZUMAB
     Indication: Crohn^s disease
     Dosage: UNKNOWN
     Route: 065
  9. NATALIZUMAB [Suspect]
     Active Substance: NATALIZUMAB
     Indication: Crohn^s disease
     Dosage: UNKNOWN
     Route: 065
  10. INFLIXIMAB [Suspect]
     Active Substance: INFLIXIMAB
     Indication: Crohn^s disease
     Dosage: UNKNOWN
     Route: 065
  11. LIRAGLUTIDE [Suspect]
     Active Substance: LIRAGLUTIDE
     Indication: Diarrhoea
     Dosage: UNK
  12. LIRAGLUTIDE [Suspect]
     Active Substance: LIRAGLUTIDE
     Indication: Bile acid malabsorption
  13. OCALIVA [Suspect]
     Active Substance: OBETICHOLIC ACID
     Indication: Bile acid malabsorption
     Dosage: 10 MILLIGRAM, QD
  14. MERCAPTOPURINE [Concomitant]
     Active Substance: MERCAPTOPURINE
     Indication: Crohn^s disease
     Dosage: LOW-DOSE
     Route: 065
  15. COLESEVELAM [Concomitant]
     Active Substance: COLESEVELAM
     Indication: Crohn^s disease
     Dosage: 1875 MILLIGRAM, QD
     Route: 065
  16. COLESEVELAM [Concomitant]
     Active Substance: COLESEVELAM
     Indication: Bile acid malabsorption
  17. LAMOTRIGINE [Concomitant]
     Active Substance: LAMOTRIGINE
     Indication: Myoclonic epilepsy
     Dosage: 400 MILLIGRAM, QD
     Route: 065
  18. LAMOTRIGINE [Concomitant]
     Active Substance: LAMOTRIGINE
     Indication: Epilepsy
  19. LEVETIRACETAM [Concomitant]
     Active Substance: LEVETIRACETAM
     Indication: Depression
     Dosage: 1500 MILLIGRAM, QD
     Route: 065
  20. LOPERAMIDE [Concomitant]
     Active Substance: LOPERAMIDE
     Indication: Bile acid malabsorption
     Dosage: 2 TO 8 MG
     Route: 065
  21. VENLAFAXINE HYDROCHLORIDE [Concomitant]
     Active Substance: VENLAFAXINE HYDROCHLORIDE
     Indication: Depression
     Dosage: 225 MILLIGRAM, QD
  22. QUESTRAN [Concomitant]
     Active Substance: CHOLESTYRAMINE
     Indication: Bile acid malabsorption
     Dosage: UNKNOWN DOSE
  23. QUESTRAN [Concomitant]
     Active Substance: CHOLESTYRAMINE
     Indication: Bile acid malabsorption
  24. IMODIUM [Concomitant]
     Active Substance: LOPERAMIDE HYDROCHLORIDE
     Indication: Bile acid malabsorption
     Dosage: UNKNOWN DOSE
  25. CODEINE PHOSPHATE [Concomitant]
     Active Substance: CODEINE PHOSPHATE
     Indication: Diarrhoea
     Dosage: UNKNOWN DOSE
  26. CODEINE PHOSPHATE [Concomitant]
     Active Substance: CODEINE PHOSPHATE
     Indication: Bile acid malabsorption
  27. COLESEVELAM HYDROCHLORIDE [Concomitant]
     Active Substance: COLESEVELAM HYDROCHLORIDE
     Indication: Bile acid malabsorption
     Dosage: 1875 MILLIGRAM, QD(625 MG, 3X/DAY (TID))
  28. COLESEVELAM HYDROCHLORIDE [Concomitant]
     Active Substance: COLESEVELAM HYDROCHLORIDE
     Indication: Crohn^s disease
  29. VANCOMYCIN [Concomitant]
     Active Substance: VANCOMYCIN
     Dosage: 125 MG, 4X/DAY
  30. CHOLESTYRAMINE [Concomitant]
     Active Substance: CHOLESTYRAMINE
     Indication: Bile acid malabsorption
     Dosage: UNK

REACTIONS (9)
  - Clostridium difficile colitis [Unknown]
  - Bile acid malabsorption [Not Recovered/Not Resolved]
  - Functional gastrointestinal disorder [Not Recovered/Not Resolved]
  - Off label use [Unknown]
  - Drug ineffective [Unknown]
  - Abdominal pain [Unknown]
  - Product use in unapproved indication [Unknown]
  - Drug ineffective for unapproved indication [Unknown]
  - Therapeutic response decreased [Unknown]
